FAERS Safety Report 5976613-2 (Version None)
Quarter: 2008Q4

REPORT INFORMATION
  Report Type: 
  Country: None (occurrence: None)
  Receive Date: 20081203
  Receipt Date: 20081126
  Transmission Date: 20090506
  Serious: Yes (Other)
  Sender: FDA-Public Use
  Company Number: GB-RANBAXY-2008RR-19572

PATIENT
  Age: 83 Year
  Sex: Male

DRUGS (4)
  1. DOXYCYCLINE [Suspect]
     Indication: DEVICE RELATED INFECTION
  2. MEROPENEM [Suspect]
     Indication: DEVICE RELATED INFECTION
  3. PRISTYNAMYCIN [Suspect]
  4. VANCOMYCIN HYDROCHLORIDE [Suspect]
     Indication: DEVICE RELATED INFECTION

REACTIONS (3)
  - LETHARGY [None]
  - MULTIPLE-DRUG RESISTANCE [None]
  - NAUSEA [None]
